FAERS Safety Report 20734955 (Version 3)
Quarter: 2022Q3

REPORT INFORMATION
  Report Type: Spontaneous
  Country: FR (occurrence: FR)
  Receive Date: 20220421
  Receipt Date: 20220713
  Transmission Date: 20221027
  Serious: Yes (Hospitalization, Other)
  Sender: FDA-Public Use
  Company Number: FR-GSKCCFEMEA-Case-01472077_AE-57144

PATIENT

DRUGS (1)
  1. FLUTICASONE PROPIONATE [Suspect]
     Active Substance: FLUTICASONE PROPIONATE
     Indication: Product used for unknown indication
     Dosage: 1 DF, BID, 3 DOSES IN THE MORNING AND 3 DOSES IN THE EVENING

REACTIONS (4)
  - Hospitalisation [Unknown]
  - Asthmatic crisis [Unknown]
  - Product prescribing issue [Unknown]
  - Inappropriate schedule of product administration [Unknown]
